FAERS Safety Report 12710356 (Version 1)
Quarter: 2016Q3

REPORT INFORMATION
  Report Type: Report from Study
  Country: FR (occurrence: FR)
  Receive Date: 20160902
  Receipt Date: 20160902
  Transmission Date: 20161109
  Serious: Yes (Hospitalization)
  Sender: FDA-Public Use
  Company Number: FR-ROCHE-1773795

PATIENT
  Age: 62 Year
  Sex: Female

DRUGS (7)
  1. KENZEN [Concomitant]
     Active Substance: CANDESARTAN
     Indication: HYPERTENSION
     Dosage: DATE OF LAST DOSE PRIOR TO SAE: 03/JUN/2016
     Route: 048
     Dates: start: 20160513
  2. EUPRESSYL [Concomitant]
     Active Substance: URAPIDIL
     Indication: HYPERTENSION
     Dosage: DATE OF LAST DOSE PRIOR TO SAE: 03/JUN/2016
     Route: 048
     Dates: start: 201605
  3. LASILIX [Concomitant]
     Active Substance: FUROSEMIDE
     Indication: HYPERTENSION
     Dosage: DATE OF LAST DOSE PRIOR TO SAE: 03/JUN/2016
     Route: 048
     Dates: start: 201605
  4. GEMCITABINE [Suspect]
     Active Substance: GEMCITABINE\GEMCITABINE HYDROCHLORIDE
     Indication: METASTATIC RENAL CELL CARCINOMA
     Dosage: LAST DOSE PRIOR TO SERIOUS ADVERSE EVENT (SAE): 13/MAY/2016?SAE CYCLE NUMBER: 6
     Route: 042
     Dates: start: 20160121
  5. CISPLATIN. [Suspect]
     Active Substance: CISPLATIN
     Indication: METASTATIC RENAL CELL CARCINOMA
     Dosage: LAST DOSE PRIOR TO SERIOUS ADVERSE EVENT (SAE): 05/MAY/2016?SAE CYCLE NUMBER: 6
     Route: 042
     Dates: start: 20160121
  6. BEVACIZUMAB [Suspect]
     Active Substance: BEVACIZUMAB
     Indication: METASTATIC RENAL CELL CARCINOMA
     Dosage: LAST DOSE PRIOR TO SERIOUS ADVERSE EVENT (SAE): 04/MAY/2016?SAE CYCLE NUMBER: 6
     Route: 042
     Dates: start: 20160121
  7. TENORMIN [Concomitant]
     Active Substance: ATENOLOL
     Indication: HYPERTENSION
     Dosage: DATE OF LAST DOSE PRIOR TO SAE: 03/JUN/2016
     Route: 048
     Dates: start: 201605

REACTIONS (1)
  - Confusional state [Recovered/Resolved]

NARRATIVE: CASE EVENT DATE: 20160604
